FAERS Safety Report 21464693 (Version 1)
Quarter: 2022Q4

REPORT INFORMATION
  Report Type: Spontaneous
  Country: CN (occurrence: CN)
  Receive Date: 20221017
  Receipt Date: 20221017
  Transmission Date: 20230113
  Serious: Yes (Other)
  Sender: FDA-Public Use
  Company Number: CN-NOVARTISPH-NVSC2022CN231943

PATIENT
  Sex: Female

DRUGS (4)
  1. EVEROLIMUS [Suspect]
     Active Substance: EVEROLIMUS
     Indication: Uterine cancer
     Dosage: 10 MG, QD
     Route: 065
     Dates: start: 201805
  2. EVEROLIMUS [Suspect]
     Active Substance: EVEROLIMUS
     Indication: Perivascular epithelioid cell tumour
  3. EVEROLIMUS [Suspect]
     Active Substance: EVEROLIMUS
     Indication: Metastases to lung
  4. EVEROLIMUS [Suspect]
     Active Substance: EVEROLIMUS
     Indication: Metastases to bone

REACTIONS (7)
  - Perivascular epithelioid cell tumour [Unknown]
  - Uterine cancer [Unknown]
  - Malignant neoplasm progression [Unknown]
  - Nausea [Unknown]
  - Rash [Unknown]
  - Therapy partial responder [Unknown]
  - Product use in unapproved indication [Unknown]

NARRATIVE: CASE EVENT DATE: 20180801
